FAERS Safety Report 4642755-7 (Version None)
Quarter: 2005Q2

REPORT INFORMATION
  Report Type: 
  Country: None (occurrence: None)
  Receive Date: 20050420
  Receipt Date: 20050401
  Transmission Date: 20051028
  Serious: Yes (Other)
  Sender: FDA-Public Use
  Company Number: CA_050407956

PATIENT
  Age: 61 Year
  Sex: Female
  Weight: 50 kg

DRUGS (3)
  1. FORTEO [Suspect]
     Indication: OSTEOPOROSIS
     Dosage: 20 UG/1 DAY
     Dates: start: 20041006
  2. CALCIUM GLUCONATE [Concomitant]
  3. VITAMIN D [Concomitant]

REACTIONS (1)
  - DIARRHOEA [None]
